FAERS Safety Report 8865967 (Version 1)
Quarter: 2012Q4

REPORT INFORMATION
  Report Type: Report from Study
  Country: US (occurrence: US)
  Receive Date: 20121025
  Receipt Date: 20121025
  Transmission Date: 20130627
  Serious: No
  Sender: FDA-Public Use
  Company Number: US-ABBOTT-12P-163-0955921-00

PATIENT
  Sex: Female
  Weight: 65.83 kg

DRUGS (5)
  1. LUPRON DEPOT [Suspect]
     Indication: ENDOMETRIOSIS
     Route: 030
     Dates: start: 20120123
  2. LEVOTHYROXINE [Concomitant]
     Indication: PRODUCT USED FOR UNKNOWN INDICATION
     Dosage: 75mcg daily
     Route: 048
  3. IBUPROFEN [Concomitant]
     Indication: PRODUCT USED FOR UNKNOWN INDICATION
     Route: 048
  4. ESTRADIOL [Concomitant]
     Indication: HOT FLUSH
     Dosage: 1mg daily
  5. ESTRADIOL [Concomitant]
     Dosage: .5mg

REACTIONS (7)
  - Feeling hot [Recovering/Resolving]
  - Hot flush [Recovering/Resolving]
  - Poor quality sleep [Recovering/Resolving]
  - Hyperhidrosis [Recovering/Resolving]
  - Headache [Recovering/Resolving]
  - Migraine [Recovering/Resolving]
  - Sinus disorder [Recovering/Resolving]
